FAERS Safety Report 18576856 (Version 1)
Quarter: 2020Q4

REPORT INFORMATION
  Report Type: Report from Study
  Country: CA (occurrence: CA)
  Receive Date: 20201203
  Receipt Date: 20201203
  Transmission Date: 20210114
  Serious: Yes (Other)
  Sender: FDA-Public Use
  Company Number: CA-CELLTRION INC.-2020CA031160

PATIENT

DRUGS (5)
  1. TRUXIMA [Suspect]
     Active Substance: RITUXIMAB-ABBS
     Indication: RHEUMATOID ARTHRITIS
     Dosage: 1000 MG, FREQUENCY D1 AND D15
     Route: 042
     Dates: start: 20201004
  2. TYLENOL [Concomitant]
     Active Substance: ACETAMINOPHEN
     Indication: PREMEDICATION
  3. BENADRYL [Concomitant]
     Active Substance: DIPHENHYDRAMINE HYDROCHLORIDE
     Indication: PREMEDICATION
  4. METHYLPRED [Concomitant]
     Active Substance: METHYLPREDNISOLONE
     Indication: PREMEDICATION
  5. TRUXIMA [Suspect]
     Active Substance: RITUXIMAB-ABBS
     Dosage: 1000 MG
     Route: 042
     Dates: start: 20201104

REACTIONS (9)
  - Feeling hot [Recovering/Resolving]
  - Drug hypersensitivity [Unknown]
  - Throat tightness [Recovering/Resolving]
  - Therapy cessation [Unknown]
  - Dry throat [Recovering/Resolving]
  - Throat irritation [Recovering/Resolving]
  - Flushing [Recovering/Resolving]
  - Product substitution [Unknown]
  - Erythema [Recovering/Resolving]

NARRATIVE: CASE EVENT DATE: 20201104
